FAERS Safety Report 22919040 (Version 4)
Quarter: 2024Q2

REPORT INFORMATION
  Report Type: Spontaneous
  Country: JP (occurrence: JP)
  Receive Date: 20230907
  Receipt Date: 20240425
  Transmission Date: 20240716
  Serious: Yes (Hospitalization, Other)
  Sender: FDA-Public Use
  Company Number: JP-TAKEDA-2023TJP011770

PATIENT
  Age: 74 Year
  Sex: Male
  Weight: 56 kg

DRUGS (8)
  1. TRINTELLIX [Suspect]
     Active Substance: VORTIOXETINE HYDROBROMIDE
     Indication: Major depression
     Dosage: 10 MILLIGRAM
     Route: 048
  2. LEMBOREXANT [Concomitant]
     Active Substance: LEMBOREXANT
     Indication: Major depression
     Dosage: 2.5 MILLIGRAM
     Route: 065
  3. MIYA-BM [Concomitant]
     Active Substance: CLOSTRIDIUM BUTYRICUM SPORES STRAIN M-55
     Dosage: 3 GRAM
     Route: 065
  4. ESOMEPRAZOLE [Concomitant]
     Active Substance: ESOMEPRAZOLE
     Dosage: 20 MILLIGRAM
     Route: 065
  5. BISOPROLOL FUMARATE [Concomitant]
     Active Substance: BISOPROLOL FUMARATE
     Dosage: 2.5 MILLIGRAM
     Route: 065
  6. CANDESARTAN [Concomitant]
     Active Substance: CANDESARTAN
     Dosage: 4 MILLIGRAM
     Route: 065
  7. RIVAROXABAN [Concomitant]
     Active Substance: RIVAROXABAN
     Dosage: 15 MILLIGRAM
     Route: 065
  8. SILODOSIN [Concomitant]
     Active Substance: SILODOSIN
     Dosage: 8 MILLIGRAM
     Route: 065

REACTIONS (1)
  - Inappropriate antidiuretic hormone secretion [Recovering/Resolving]
